FAERS Safety Report 22113372 (Version 6)
Quarter: 2025Q1

REPORT INFORMATION
  Report Type: Spontaneous
  Country: FR (occurrence: FR)
  Receive Date: 20230320
  Receipt Date: 20250319
  Transmission Date: 20250409
  Serious: Yes (Other)
  Sender: BRISTOL-MYERS SQUIBB COMPANY
  Company Number: FR-BRISTOL-MYERS SQUIBB COMPANY-2023-038915

PATIENT
  Age: 49 Year
  Sex: Female
  Weight: 62 kg

DRUGS (4)
  1. OPDIVO [Suspect]
     Active Substance: NIVOLUMAB
     Indication: Pleural mesothelioma malignant
     Route: 042
     Dates: start: 20220316, end: 20230302
  2. OPDIVO [Suspect]
     Active Substance: NIVOLUMAB
     Dates: start: 20230411
  3. YERVOY [Suspect]
     Active Substance: IPILIMUMAB
     Indication: Pleural mesothelioma malignant
     Route: 042
     Dates: start: 20220316, end: 20230302
  4. YERVOY [Suspect]
     Active Substance: IPILIMUMAB
     Dates: start: 20230411

REACTIONS (3)
  - Off label use [Unknown]
  - Diabetic ketoacidosis [Unknown]
  - Malignant neoplasm progression [Unknown]

NARRATIVE: CASE EVENT DATE: 20230224
